FAERS Safety Report 10355117 (Version 1)
Quarter: 2014Q3

REPORT INFORMATION
  Report Type: Other
  Country: FR (occurrence: FR)
  Receive Date: 20140731
  Receipt Date: 20140731
  Transmission Date: 20150326
  Serious: Yes (Hospitalization)
  Sender: FDA-Public Use
  Company Number: FR-ASTELLAS-2014EU010326

PATIENT
  Age: 1 Year
  Sex: Male
  Weight: 12 kg

DRUGS (6)
  1. MODIGRAF [Suspect]
     Active Substance: TACROLIMUS
     Route: 048
     Dates: start: 20140220, end: 20140221
  2. MODIGRAF [Suspect]
     Active Substance: TACROLIMUS
     Route: 048
     Dates: start: 20140223, end: 20140224
  3. MODIGRAF [Suspect]
     Active Substance: TACROLIMUS
     Route: 048
     Dates: start: 20140226, end: 20140227
  4. MODIGRAF [Suspect]
     Active Substance: TACROLIMUS
     Route: 048
     Dates: start: 20140225
  5. MODIGRAF [Suspect]
     Active Substance: TACROLIMUS
     Route: 048
     Dates: start: 20140222
  6. MODIGRAF [Suspect]
     Active Substance: TACROLIMUS
     Indication: LIVER TRANSPLANT
     Dosage: 0.6 MG, TWICE DAILY
     Route: 048
     Dates: start: 20140218

REACTIONS (2)
  - Immunosuppressant drug level decreased [Recovered/Resolved]
  - Liver transplant rejection [Recovered/Resolved]

NARRATIVE: CASE EVENT DATE: 20140221
